FAERS Safety Report 25858287 (Version 6)
Quarter: 2025Q4

REPORT INFORMATION
  Report Type: Report from Study
  Country: EU (occurrence: EU)
  Receive Date: 20250929
  Receipt Date: 20251110
  Transmission Date: 20260118
  Serious: Yes (Hospitalization)
  Sender: ABBVIE
  Company Number: EU-ABBVIE-6477582

PATIENT
  Age: 72 Year
  Sex: Female

DRUGS (4)
  1. FOSCARBIDOPA\FOSLEVODOPA [Suspect]
     Active Substance: FOSCARBIDOPA\FOSLEVODOPA
     Indication: Parkinson^s disease
     Dosage: CRN: 0.15 ML/H, CR: 0.25 ML/H, CRH: 0.27 ML/H, ED: 0.10 ML
     Route: 058
     Dates: start: 20250908, end: 20250908
  2. FOSCARBIDOPA\FOSLEVODOPA [Suspect]
     Active Substance: FOSCARBIDOPA\FOSLEVODOPA
     Dosage: CRN: 0.15 ML/H, CR: 0.23 ML/H, CRH: 0.25 ML/H, ED: 0.1 ML?LAST ADMIN DATE: SEP 2025.
     Route: 058
     Dates: start: 20250908
  3. FOSCARBIDOPA\FOSLEVODOPA [Suspect]
     Active Substance: FOSCARBIDOPA\FOSLEVODOPA
     Dosage: CRN: 0.15 ML/H, CR: 0.25 ML/H, CRH: 0.27 ML/H, ED: 0.10 ML 1 HOUR BLOCKAGE ?LAST ADMIN DATE: SEP ...
     Route: 058
     Dates: start: 202509
  4. FOSCARBIDOPA\FOSLEVODOPA [Suspect]
     Active Substance: FOSCARBIDOPA\FOSLEVODOPA
     Dosage: CRN: 0.15 ML/H, CR: 0.23 ML/H, CRH: 0.25 ML/H, ED: 0.10 ML
     Route: 058
     Dates: start: 2025, end: 20251002

REACTIONS (9)
  - Anxiety [Not Recovered/Not Resolved]
  - Stress [Unknown]
  - Panic attack [Recovered/Resolved]
  - Agitation [Unknown]
  - Panic attack [Unknown]
  - Injury [Unknown]
  - Product prescribing error [Unknown]
  - Dyskinesia [Unknown]
  - Restlessness [Unknown]

NARRATIVE: CASE EVENT DATE: 20250901
